FAERS Safety Report 13595183 (Version 2)
Quarter: 2017Q3

REPORT INFORMATION
  Report Type: Spontaneous
  Country: JP (occurrence: JP)
  Receive Date: 20170531
  Receipt Date: 20170704
  Transmission Date: 20171127
  Serious: Yes (Other)
  Sender: FDA-Public Use
  Company Number: JP-ORION CORPORATION ORION PHARMA-ENT 2017-0087

PATIENT
  Sex: Female

DRUGS (4)
  1. L DOPA [Suspect]
     Active Substance: LEVODOPA
     Route: 065
  2. COMTAN [Suspect]
     Active Substance: ENTACAPONE
     Dosage: IN MORNING AND AT NOON
     Route: 065
  3. COMTAN [Suspect]
     Active Substance: ENTACAPONE
     Indication: PARKINSON^S DISEASE
     Route: 048
  4. L DOPA [Suspect]
     Active Substance: LEVODOPA
     Route: 065

REACTIONS (2)
  - Dyskinesia [Recovered/Resolved]
  - Fall [Unknown]
